FAERS Safety Report 10969210 (Version 1)
Quarter: 2015Q1

REPORT INFORMATION
  Report Type: Spontaneous
  Country: IT (occurrence: None)
  Receive Date: 20150319
  Receipt Date: 20150319
  Transmission Date: 20150721
  Serious: Yes (Other)
  Sender: FDA-Public Use
  Company Number: 8016566

PATIENT
  Sex: Female

DRUGS (2)
  1. EUTIROX (LEVOTHYROXINE SODIUM) (LEVOTHYROXINE SODIUM) [Suspect]
     Active Substance: LEVOTHYROXINE SODIUM
     Indication: HYPOTHYROIDISM
  2. LEVOCETIRIZINE (LEVOCETIRIZINE) [Suspect]
     Active Substance: LEVOCETIRIZINE
     Indication: ANGIOEDEMA

REACTIONS (1)
  - Angioedema [None]
